FAERS Safety Report 11749369 (Version 2)
Quarter: 2015Q4

REPORT INFORMATION
  Report Type: Report from Study
  Country: AR (occurrence: AR)
  Receive Date: 20151118
  Receipt Date: 20151121
  Transmission Date: 20160304
  Serious: Yes (Death, Hospitalization)
  Sender: FDA-Public Use
  Company Number: PHHY2015AR150219

PATIENT
  Age: 78 Year
  Sex: Male

DRUGS (1)
  1. ONBREZ BREEZHALER [Suspect]
     Active Substance: INDACATEROL
     Indication: CHRONIC OBSTRUCTIVE PULMONARY DISEASE
     Dosage: UNK UNK, QD
     Route: 065
     Dates: end: 201407

REACTIONS (4)
  - General physical health deterioration [Fatal]
  - Pain [Unknown]
  - Lung neoplasm malignant [Fatal]
  - Metastases to liver [Fatal]

NARRATIVE: CASE EVENT DATE: 201406
